FAERS Safety Report 9896308 (Version 2)
Quarter: 2014Q1

REPORT INFORMATION
  Report Type: Spontaneous
  Country: US (occurrence: US)
  Receive Date: 20140213
  Receipt Date: 20140213
  Transmission Date: 20141002
  Serious: No
  Sender: FDA-Public Use
  Company Number: US-BRISTOL-MYERS SQUIBB COMPANY-18828442

PATIENT
  Age: 54 Year
  Sex: Female
  Weight: 91.15 kg

DRUGS (5)
  1. ORENCIA [Suspect]
     Indication: RHEUMATOID ARTHRITIS
     Dosage: DATE OF LAST INFUSION: 19APR2013
     Route: 042
     Dates: start: 20130405
  2. IBUPROFEN [Concomitant]
     Indication: PAIN
     Dosage: TABS
  3. HYDROCODONE + ACETAMINOPHEN [Concomitant]
     Indication: PAIN
     Dosage: 5/325 TABS
  4. GABAPENTIN [Concomitant]
     Indication: MUSCLE SPASMS
     Dosage: CAPS;?AT BEDTIME
  5. PREDNISONE [Concomitant]
     Dosage: TABS

REACTIONS (2)
  - Pollakiuria [Recovered/Resolved]
  - Nerve compression [Not Recovered/Not Resolved]
